FAERS Safety Report 7371744-7 (Version None)
Quarter: 2011Q1

REPORT INFORMATION
  Report Type: 
  Country: None (occurrence: None)
  Receive Date: 20110324
  Receipt Date: 20110322
  Transmission Date: 20110831
  Serious: Yes (Life-Threatening)
  Sender: FDA-Public Use
  Company Number: DE-ROCHE-762897

PATIENT
  Sex: Female
  Weight: 70 kg

DRUGS (3)
  1. NAVELBINE [Concomitant]
     Dosage: ON DAY1, DAY8 AND DAY21
     Route: 042
     Dates: start: 20101208
  2. AVASTIN [Suspect]
     Route: 042
     Dates: start: 20101208, end: 20101229
  3. ZOMETA [Concomitant]
     Route: 042
     Dates: start: 20101208

REACTIONS (3)
  - GASTRIC ULCER [None]
  - GASTRIC PERFORATION [None]
  - PERITONITIS [None]
